FAERS Safety Report 13319729 (Version 1)
Quarter: 2017Q1

REPORT INFORMATION
  Report Type: Spontaneous
  Country: US (occurrence: US)
  Receive Date: 20170309
  Receipt Date: 20170309
  Transmission Date: 20170428
  Serious: No
  Sender: FDA-Public Use
  Company Number: US-TEVA-717378ACC

PATIENT
  Age: 43 Year
  Sex: Male
  Weight: 68 kg

DRUGS (2)
  1. BUSPIRONE HYDROCHLORIDE TABLETS, USP [Suspect]
     Active Substance: BUSPIRONE HYDROCHLORIDE
  2. BUSPIRONE HYDROCHLORIDE TABLETS, USP [Suspect]
     Active Substance: BUSPIRONE HYDROCHLORIDE

REACTIONS (2)
  - Libido decreased [Not Recovered/Not Resolved]
  - Ejaculation delayed [Not Recovered/Not Resolved]

NARRATIVE: CASE EVENT DATE: 2016
